FAERS Safety Report 4929984-X (Version None)
Quarter: 2006Q1

REPORT INFORMATION
  Report Type: 
  Country: None (occurrence: None)
  Receive Date: 20060302
  Receipt Date: 20060217
  Transmission Date: 20060701
  Serious: Yes (Other)
  Sender: FDA-Public Use
  Company Number: PHEH2006US02254

PATIENT
  Sex: Male

DRUGS (2)
  1. AREDIA [Suspect]
     Indication: PROSTATE CANCER
  2. ZOMETA [Suspect]

REACTIONS (10)
  - BONE DISORDER [None]
  - DENTAL DISCOMFORT [None]
  - EMOTIONAL DISTRESS [None]
  - FACE INJURY [None]
  - JAW OPERATION [None]
  - LIFE EXPECTANCY SHORTENED [None]
  - ORAL INTAKE REDUCED [None]
  - OSTEONECROSIS [None]
  - PAIN IN JAW [None]
  - TOOTH LOSS [None]
